FAERS Safety Report 5379283-X (Version None)
Quarter: 2007Q3

REPORT INFORMATION
  Report Type: 
  Country: None (occurrence: None)
  Receive Date: 20070705
  Receipt Date: 20070619
  Transmission Date: 20080115
  Serious: Yes (Other)
  Sender: FDA-Public Use
  Company Number: DK-SHR-DK-2007-023597

PATIENT
  Age: 31 Year
  Sex: Female
  Weight: 74 kg

DRUGS (1)
  1. YASMIN [Suspect]
     Indication: ENDOMETRIOSIS
     Dosage: 1 TAB(S), 21D/28D
     Route: 048
     Dates: start: 20050802, end: 20051102

REACTIONS (5)
  - DIZZINESS [None]
  - HEADACHE [None]
  - MYALGIA [None]
  - VISUAL DISTURBANCE [None]
  - VOMITING [None]
